FAERS Safety Report 10801227 (Version 1)
Quarter: 2015Q1

REPORT INFORMATION
  Report Type: Report from Study
  Country: US (occurrence: US)
  Receive Date: 20150217
  Receipt Date: 20150217
  Transmission Date: 20150721
  Serious: No
  Sender: FDA-Public Use
  Company Number: US-AMGEN-USASL2015012592

PATIENT
  Age: 42 Year
  Sex: Female

DRUGS (1)
  1. ENBREL [Suspect]
     Active Substance: ETANERCEPT
     Indication: PSORIASIS
     Dosage: 50 MG, 2 TIMES/WK
     Route: 065
     Dates: start: 201412, end: 201502

REACTIONS (5)
  - Weight decreased [Unknown]
  - Impaired driving ability [Unknown]
  - Dizziness [Recovering/Resolving]
  - Malaise [Unknown]
  - Vertigo [Recovering/Resolving]
